FAERS Safety Report 20087899 (Version 2)
Quarter: 2021Q4

REPORT INFORMATION
  Report Type: Spontaneous
  Country: SG (occurrence: SG)
  Receive Date: 20211118
  Receipt Date: 20211129
  Transmission Date: 20220303
  Serious: Yes (Other)
  Sender: FDA-Public Use
  Company Number: SG-TEVA-2021-SG-1977387

PATIENT
  Age: 50 Year
  Sex: Female

DRUGS (17)
  1. PREDNISOLONE [Suspect]
     Active Substance: PREDNISOLONE
     Indication: Immunosuppressant drug therapy
     Dosage: 10 MILLIGRAM DAILY;
     Route: 065
  2. MYCOPHENOLATE MOFETIL [Suspect]
     Active Substance: MYCOPHENOLATE MOFETIL
     Indication: Immunosuppressant drug therapy
     Dosage: 1000 MILLIGRAM DAILY; MORNING AND EVENING
     Route: 065
  3. MYCOPHENOLATE MOFETIL [Suspect]
     Active Substance: MYCOPHENOLATE MOFETIL
     Dosage: 750 MILLIGRAM DAILY; MORNING 500 MG AND 250 MG AT EVENING
     Route: 065
  4. TACROLIMUS [Suspect]
     Active Substance: TACROLIMUS
     Indication: Immunosuppressant drug therapy
     Route: 065
  5. TACROLIMUS [Suspect]
     Active Substance: TACROLIMUS
     Dosage: HALF DOSE
     Route: 065
  6. VORICONAZOLE [Suspect]
     Active Substance: VORICONAZOLE
     Indication: Fungal infection
     Dosage: 12 MG/KG DAILY; ON FIRST DAY
     Route: 042
     Dates: start: 20200312
  7. VORICONAZOLE [Suspect]
     Active Substance: VORICONAZOLE
     Dosage: 8 MG/KG DAILY; FOLLOWING 1ST DAY
     Route: 042
  8. VORICONAZOLE [Suspect]
     Active Substance: VORICONAZOLE
     Dosage: 11 MG/KG DAILY;
     Route: 042
  9. VORICONAZOLE [Suspect]
     Active Substance: VORICONAZOLE
     Dosage: 7-8MG/KG
     Route: 042
  10. VORICONAZOLE [Suspect]
     Active Substance: VORICONAZOLE
     Dosage: 12 MG/KG DAILY;
     Route: 048
  11. AMPHOTERICIN B [Suspect]
     Active Substance: AMPHOTERICIN B
     Indication: Fungal infection
     Dosage: 5 MG/KG DAILY;
     Route: 042
     Dates: start: 20200312, end: 20200621
  12. AMPHOTERICIN B [Suspect]
     Active Substance: AMPHOTERICIN B
     Indication: Lung disorder
     Route: 037
  13. AMPHOTERICIN B [Suspect]
     Active Substance: AMPHOTERICIN B
     Route: 055
  14. VALGANCICLOVIR [Concomitant]
     Active Substance: VALGANCICLOVIR
     Indication: Prophylaxis
     Route: 065
  15. PENTAMIDINE [Concomitant]
     Active Substance: PENTAMIDINE
     Indication: Prophylaxis
     Route: 065
  16. AMOXICILLIN\CLAVULANIC ACID [Concomitant]
     Active Substance: AMOXICILLIN\CLAVULANIC ACID
     Indication: Prophylaxis
     Route: 065
  17. ISAVUCONAZOLE [Concomitant]
     Active Substance: ISAVUCONAZOLE
     Indication: Evidence based treatment
     Route: 042

REACTIONS (11)
  - Fungal infection [Unknown]
  - Facial paralysis [Unknown]
  - Upper motor neurone lesion [Unknown]
  - Neurologic neglect syndrome [Unknown]
  - Periostitis [Unknown]
  - Drug ineffective [Unknown]
  - Acute kidney injury [Unknown]
  - Electrolyte imbalance [Unknown]
  - Fluorosis [Unknown]
  - Urinary retention [Recovered/Resolved]
  - Urinary tract infection [Recovered/Resolved]
